FAERS Safety Report 20309246 (Version 1)
Quarter: 2022Q1

REPORT INFORMATION
  Report Type: Spontaneous
  Country: GB (occurrence: GB)
  Receive Date: 20220107
  Receipt Date: 20220107
  Transmission Date: 20220423
  Serious: Yes (Hospitalization)
  Sender: FDA-Public Use
  Company Number: GB-MYLANLABS-2022M1000741

PATIENT
  Age: 49 Year
  Sex: Male

DRUGS (16)
  1. LINEZOLID [Suspect]
     Active Substance: LINEZOLID
     Indication: Brain abscess
     Dosage: 600 MILLIGRAM, BID
     Route: 042
     Dates: start: 201811
  2. LINEZOLID [Suspect]
     Active Substance: LINEZOLID
     Indication: Cerebral nocardiosis
  3. LINEZOLID [Suspect]
     Active Substance: LINEZOLID
     Indication: Brain abscess
     Dosage: 600 MILLIGRAM, BID
     Route: 048
  4. LINEZOLID [Suspect]
     Active Substance: LINEZOLID
     Indication: Cerebral nocardiosis
     Dosage: UNK, DOSE DECREASED
  5. COTRIMOXAZOLE [Suspect]
     Active Substance: SULFAMETHOXAZOLE\TRIMETHOPRIM
     Indication: Brain abscess
     Dosage: UNK, QD, 15MG/KG OF TRIMETHOPRIM IN 3 DIVIDED DOSES
     Route: 042
     Dates: start: 201811
  6. COTRIMOXAZOLE [Suspect]
     Active Substance: SULFAMETHOXAZOLE\TRIMETHOPRIM
     Indication: Cerebral nocardiosis
  7. IMIPENEM [Suspect]
     Active Substance: IMIPENEM
     Indication: Brain abscess
     Dosage: 500 MILLIGRAM, QID
     Route: 042
     Dates: start: 201811
  8. IMIPENEM [Suspect]
     Active Substance: IMIPENEM
     Indication: Cerebral nocardiosis
  9. MEROPENEM [Suspect]
     Active Substance: MEROPENEM
     Indication: Brain abscess
     Dosage: 2 GRAM, TID
     Route: 042
  10. MEROPENEM [Suspect]
     Active Substance: MEROPENEM
     Indication: Cerebral nocardiosis
     Dosage: 1 GRAM, TID
     Route: 042
  11. MOXIFLOXACIN [Concomitant]
     Active Substance: MOXIFLOXACIN
     Indication: Brain abscess
     Dosage: 800 MILLIGRAM, QD
     Route: 048
  12. MOXIFLOXACIN [Concomitant]
     Active Substance: MOXIFLOXACIN
     Indication: Nocardiosis
     Dosage: 400 MILLIGRAM, BID
     Route: 048
  13. CEFTRIAXONE [Concomitant]
     Active Substance: CEFTRIAXONE
     Indication: Brain abscess
     Dosage: 2 GRAM, BID
     Route: 042
     Dates: start: 201811
  14. CEFTRIAXONE [Concomitant]
     Active Substance: CEFTRIAXONE
     Indication: Cerebral nocardiosis
  15. METRONIDAZOLE [Concomitant]
     Active Substance: METRONIDAZOLE
     Indication: Brain abscess
     Dosage: 500 MILLIGRAM, TID
     Route: 042
     Dates: start: 201811
  16. METRONIDAZOLE [Concomitant]
     Active Substance: METRONIDAZOLE
     Indication: Cerebral nocardiosis

REACTIONS (2)
  - Transaminases increased [Unknown]
  - Haemoglobin decreased [Unknown]

NARRATIVE: CASE EVENT DATE: 20180101
